FAERS Safety Report 7687470-0 (Version None)
Quarter: 2011Q3

REPORT INFORMATION
  Report Type: 
  Country: None (occurrence: None)
  Receive Date: 20110816
  Receipt Date: 20110810
  Transmission Date: 20111222
  Serious: Yes (Other)
  Sender: FDA-Public Use
  Company Number: BR-SANOFI-AVENTIS-2011SA051767

PATIENT
  Sex: Female
  Weight: 79 kg

DRUGS (8)
  1. CIPROFIBRATE [Concomitant]
     Route: 048
     Dates: start: 20110701
  2. AUTOPEN 24 [Suspect]
  3. MICARDIS [Concomitant]
     Indication: HYPERTENSION
     Route: 048
     Dates: start: 20060101
  4. LANTUS [Suspect]
     Route: 058
  5. LANTUS [Suspect]
     Route: 058
  6. CLONAZEPAM [Concomitant]
     Indication: SLEEP DISORDER
     Route: 048
  7. CYMBALTA [Concomitant]
     Indication: DEPRESSION
     Dates: start: 20070101
  8. SIMVASTATIN [Concomitant]
     Route: 048

REACTIONS (14)
  - HYPERPHAGIA [None]
  - HEPATIC STEATOSIS [None]
  - DEPRESSED MOOD [None]
  - FEELING HOT [None]
  - HYPERGLYCAEMIA [None]
  - UTERINE POLYP [None]
  - HYPOGLYCAEMIA [None]
  - WEIGHT INCREASED [None]
  - DEPRESSION [None]
  - INJECTION SITE PAIN [None]
  - INJECTION SITE HAEMORRHAGE [None]
  - INJECTION SITE HAEMATOMA [None]
  - BREAST MASS [None]
  - VISION BLURRED [None]
